FAERS Safety Report 4881464-6 (Version None)
Quarter: 2006Q1

REPORT INFORMATION
  Report Type: 
  Country: None (occurrence: None)
  Receive Date: 20060116
  Receipt Date: 20051207
  Transmission Date: 20060701
  Serious: Yes (Life-Threatening)
  Sender: FDA-Public Use
  Company Number: US-BOEHRINGER INGELHEIM PHARMACEUTICALS, INC.-2005-BP-21077BP

PATIENT
  Sex: Female

DRUGS (6)
  1. MICARDIS [Suspect]
     Dates: end: 20051201
  2. LABETOLOL [Concomitant]
     Route: 048
  3. NORVASC [Concomitant]
     Route: 048
  4. METFORMIN [Concomitant]
  5. DYAZIDE [Concomitant]
     Dates: end: 20050901
  6. CRESTOR [Concomitant]
     Route: 048

REACTIONS (1)
  - ANGIONEUROTIC OEDEMA [None]
